FAERS Safety Report 12428636 (Version 5)
Quarter: 2016Q2

REPORT INFORMATION
  Report Type: Report from Study
  Country: US (occurrence: US)
  Receive Date: 20160602
  Receipt Date: 20160629
  Transmission Date: 20160815
  Serious: Yes (Other)
  Sender: FDA-Public Use
  Company Number: US-GILEAD-2016-0216525

PATIENT
  Age: 47 Year
  Sex: Female
  Weight: 71.7 kg

DRUGS (41)
  1. VITAMIN B COMPLEX [Concomitant]
     Active Substance: CYANOCOBALAMIN\DEXPANTHENOL\NIACINAMIDE\PYRIDOXINE HYDROCHLORIDE\RIBOFLAVIN 5^-PHOSPHATE SODIUM\THIAMINE HYDROCHLORIDE\VITAMIN B COMPLEX
  2. CELEBREX [Concomitant]
     Active Substance: CELECOXIB
  3. METHAMPHETAMINE [Concomitant]
     Active Substance: METHAMPHETAMINE
  4. AMBRISENTAN [Suspect]
     Active Substance: AMBRISENTAN
     Indication: PULMONARY HYPERTENSION
     Dosage: 10 MG, QD
     Route: 048
     Dates: start: 20130404
  5. MORPHINE HYDROCHLORIDE [Concomitant]
     Active Substance: MORPHINE HYDROCHLORIDE
  6. ALPRAZOLAM. [Concomitant]
     Active Substance: ALPRAZOLAM
  7. ELAVIL [Concomitant]
     Active Substance: AMITRIPTYLINE HYDROCHLORIDE
  8. SIMVASTATIN. [Concomitant]
     Active Substance: SIMVASTATIN
  9. ORENITRAM [Concomitant]
     Active Substance: TREPROSTINIL
     Indication: PULMONARY HYPERTENSION
     Dosage: 2.5 MG, TID
     Route: 048
     Dates: start: 20151229, end: 20160309
  10. VITAMIN B12 [Concomitant]
     Active Substance: CYANOCOBALAMIN
  11. TRAMADOL. [Concomitant]
     Active Substance: TRAMADOL
  12. ONDANSETRAN [Concomitant]
     Active Substance: ONDANSETRON HYDROCHLORIDE
  13. REQUIP [Concomitant]
     Active Substance: ROPINIROLE HYDROCHLORIDE
  14. ASCORBIC ACID. [Concomitant]
     Active Substance: ASCORBIC ACID
  15. ATIVAN [Concomitant]
     Active Substance: LORAZEPAM
  16. REVATIO [Concomitant]
     Active Substance: SILDENAFIL CITRATE
  17. PROMETHAZINE [Concomitant]
     Active Substance: PROMETHAZINE\PROMETHAZINE HYDROCHLORIDE
  18. PRILOSEC [Concomitant]
     Active Substance: OMEPRAZOLE MAGNESIUM
  19. OXYGEN. [Concomitant]
     Active Substance: OXYGEN
  20. UPTRAVI [Suspect]
     Active Substance: SELEXIPAG
     Indication: PRODUCT USED FOR UNKNOWN INDICATION
     Dosage: 1600 UG, BID
     Route: 065
  21. CALCIUM [Concomitant]
     Active Substance: CALCIUM
  22. SYNTHROID [Concomitant]
     Active Substance: LEVOTHYROXINE SODIUM
  23. DIPHENHYDRAMINE. [Concomitant]
     Active Substance: DIPHENHYDRAMINE
  24. MELOXICAM. [Concomitant]
     Active Substance: MELOXICAM
  25. IRON [Concomitant]
     Active Substance: IRON
  26. TORSEMIDE. [Concomitant]
     Active Substance: TORSEMIDE
  27. ACIPHEX [Concomitant]
     Active Substance: RABEPRAZOLE SODIUM
  28. DEMADEX [Concomitant]
     Active Substance: TORSEMIDE
  29. METOLAZONE. [Concomitant]
     Active Substance: METOLAZONE
  30. RANITIDINE. [Concomitant]
     Active Substance: RANITIDINE
  31. SINEMET [Concomitant]
     Active Substance: CARBIDOPA\LEVODOPA
  32. KLOR-CON [Concomitant]
     Active Substance: POTASSIUM CHLORIDE
  33. XARELTO [Concomitant]
     Active Substance: RIVAROXABAN
  34. ACETYLSALICYLIC ACID [Concomitant]
     Active Substance: ASPIRIN
  35. BIOTIN [Concomitant]
     Active Substance: BIOTIN
  36. DIGOXIN. [Concomitant]
     Active Substance: DIGOXIN
  37. FERROUS GLUCONATE [Concomitant]
     Active Substance: FERROUS GLUCONATE
  38. FLUTICASONE [Concomitant]
     Active Substance: FLUTICASONE\FLUTICASONE PROPIONATE
  39. ALDACTONE [Concomitant]
     Active Substance: SPIRONOLACTONE
  40. COLACE [Concomitant]
     Active Substance: DOCUSATE SODIUM
  41. INVANZ [Concomitant]
     Active Substance: ERTAPENEM SODIUM

REACTIONS (11)
  - Cardiac failure acute [Unknown]
  - Spinal osteoarthritis [Unknown]
  - Joint dislocation [Unknown]
  - Ascites [Unknown]
  - Chest pain [Unknown]
  - Dyspnoea exertional [Unknown]
  - Troponin increased [Unknown]
  - Hypotension [Unknown]
  - Syncope [Unknown]
  - Musculoskeletal pain [Unknown]
  - Pleural effusion [Unknown]

NARRATIVE: CASE EVENT DATE: 201605
